FAERS Safety Report 9737556 (Version 2)
Quarter: 2014Q1

REPORT INFORMATION
  Report Type: Spontaneous
  Country: US (occurrence: US)
  Receive Date: 20131207
  Receipt Date: 20140213
  Transmission Date: 20141002
  Serious: No
  Sender: FDA-Public Use
  Company Number: US-009507513-1312USA002781

PATIENT
  Sex: Female

DRUGS (3)
  1. ASMANEX TWISTHALER [Suspect]
     Indication: ASTHMA
     Dosage: ONE PUFF TWICE DAILY AM AND PM, ORAL INHALATION
     Route: 055
     Dates: start: 20131122, end: 2014
  2. ASMANEX TWISTHALER [Suspect]
     Dosage: UNK
  3. ASMANEX TWISTHALER [Suspect]
     Dosage: ONE PUFF, QD
     Dates: start: 201312, end: 2014

REACTIONS (7)
  - Myopia [Not Recovered/Not Resolved]
  - Palpitations [Not Recovered/Not Resolved]
  - Visual acuity reduced [Not Recovered/Not Resolved]
  - Adverse event [Unknown]
  - Drug intolerance [Unknown]
  - Product quality issue [Unknown]
  - Product quality issue [Unknown]
